FAERS Safety Report 9659423 (Version 1)
Quarter: 2013Q4

REPORT INFORMATION
  Report Type: Spontaneous
  Country: TR (occurrence: TR)
  Receive Date: 20131031
  Receipt Date: 20131031
  Transmission Date: 20140711
  Serious: Yes (Other)
  Sender: FDA-Public Use
  Company Number: TR-JNJFOC-20131013748

PATIENT
  Age: 14 Year
  Sex: Female

DRUGS (4)
  1. TOPIRAMATE [Suspect]
     Indication: SEXUAL ABUSE
     Route: 048
  2. PHENYTOIN SODIUM [Suspect]
     Indication: SEXUAL ABUSE
     Route: 065
  3. OXCARBAZEPINE [Suspect]
     Indication: SEXUAL ABUSE
     Route: 065
  4. ACETAZOLAMIDE [Suspect]
     Indication: SEXUAL ABUSE
     Route: 065

REACTIONS (4)
  - Sexual abuse [Unknown]
  - Psychomotor skills impaired [Unknown]
  - Fatigue [Unknown]
  - Somnolence [Unknown]
